FAERS Safety Report 15555826 (Version 1)
Quarter: 2018Q4

REPORT INFORMATION
  Report Type: Spontaneous
  Country: US (occurrence: US)
  Receive Date: 20181026
  Receipt Date: 20181026
  Transmission Date: 20190205
  Serious: Yes (Other)
  Sender: FDA-Public Use
  Company Number: US-SA-2018SA292692

PATIENT
  Sex: Female

DRUGS (2)
  1. ALEVE [Concomitant]
     Active Substance: NAPROXEN SODIUM
  2. ASPERCREME WITH LIDOCAINE [Suspect]
     Active Substance: LIDOCAINE

REACTIONS (3)
  - Blindness [Unknown]
  - Spinal column injury [Unknown]
  - Scoliosis [Unknown]
